FAERS Safety Report 25649677 (Version 1)
Quarter: 2025Q3

REPORT INFORMATION
  Report Type: Spontaneous
  Country: US (occurrence: None)
  Receive Date: 20250805
  Receipt Date: 20250805
  Transmission Date: 20251020
  Serious: No
  Sender: FDA-CTU
  Company Number: None

PATIENT
  Age: 32 Year
  Sex: Male

DRUGS (1)
  1. BRIXADI [Suspect]
     Active Substance: BUPRENORPHINE
     Indication: Drug dependence
     Dosage: FREQUENCY : WEEKLY;?
     Route: 058
     Dates: start: 20250715, end: 20250729

REACTIONS (2)
  - Injection site infection [None]
  - Injection site induration [None]

NARRATIVE: CASE EVENT DATE: 20250722
